FAERS Safety Report 4282022-7 (Version None)
Quarter: 2004Q1

REPORT INFORMATION
  Report Type: 
  Country: None (occurrence: None)
  Receive Date: 20040128
  Receipt Date: 20040120
  Transmission Date: 20041129
  Serious: Yes (Hospitalization, Other)
  Sender: FDA-Public Use
  Company Number: FRWYE525621JAN04

PATIENT
  Age: 57 Year
  Sex: Male

DRUGS (5)
  1. NEORAL [Suspect]
     Indication: PROPHYLAXIS AGAINST TRANSPLANT REJECTION
     Dosage: 500 MG 1X PER 1 DAY ORAL; 575 MG DAILY AT THE TIME OF THE EVENT ONSET; 550 MG 1X PER 1 DAY
     Route: 048
     Dates: start: 20030826, end: 20030826
  2. NEORAL [Suspect]
     Indication: PROPHYLAXIS AGAINST TRANSPLANT REJECTION
     Dosage: 500 MG 1X PER 1 DAY ORAL; 575 MG DAILY AT THE TIME OF THE EVENT ONSET; 550 MG 1X PER 1 DAY
     Route: 048
     Dates: start: 20030827, end: 20030903
  3. NEORAL [Suspect]
     Indication: PROPHYLAXIS AGAINST TRANSPLANT REJECTION
     Dosage: 500 MG 1X PER 1 DAY ORAL; 575 MG DAILY AT THE TIME OF THE EVENT ONSET; 550 MG 1X PER 1 DAY
     Route: 048
     Dates: start: 20030904
  4. CELLCEPT [Concomitant]
  5. PREDNISOLONE [Concomitant]

REACTIONS (5)
  - ANAEMIA [None]
  - COMPLICATIONS OF TRANSPLANT SURGERY [None]
  - POST PROCEDURAL HAEMORRHAGE [None]
  - RENAL HAEMATOMA [None]
  - RENAL INFARCT [None]
